FAERS Safety Report 18188901 (Version 1)
Quarter: 2020Q3

REPORT INFORMATION
  Report Type: Spontaneous
  Country: CN (occurrence: CN)
  Receive Date: 20200825
  Receipt Date: 20200825
  Transmission Date: 20201103
  Serious: Yes (Other)
  Sender: FDA-Public Use
  Company Number: CN-ROCHE-2661636

PATIENT
  Age: 64 Year
  Sex: Male

DRUGS (7)
  1. XELODA [Suspect]
     Active Substance: CAPECITABINE
     Indication: RECTAL ADENOCARCINOMA
     Dosage: 30/MAR/2019, 20/APR/2019, 11/MAY/2019, 04/DEC/2019, 27/DEC/2019, FEB/2020, 09/APR/2020, 07/MAY/2020,
     Route: 048
  2. CETUXIMAB. [Concomitant]
     Active Substance: CETUXIMAB
     Indication: RECTAL ADENOCARCINOMA
     Dosage: 4/DEC/2019, 27/DEC/2019, 9/APR/2020, 7/MAY/2020, 5/JUN/2020
     Dates: start: 20190604, end: 20191109
  3. AVASTIN [Suspect]
     Active Substance: BEVACIZUMAB
     Indication: RECTAL ADENOCARCINOMA
     Dosage: 30/MAR/2019, 20/APR/2019, 11/MAY/2019
     Route: 065
  4. IRINOTECAN [Concomitant]
     Active Substance: IRINOTECAN
     Indication: RECTAL ADENOCARCINOMA
     Dates: start: 20190604, end: 20191109
  5. FLUOROURACIL. [Concomitant]
     Active Substance: FLUOROURACIL
     Indication: RECTAL ADENOCARCINOMA
     Dates: start: 20190604, end: 20191109
  6. OXALIPLATIN. [Concomitant]
     Active Substance: OXALIPLATIN
     Indication: RECTAL ADENOCARCINOMA
     Dosage: 30/MAR/2019, 20/APR/2019, 11/MAY/2019
  7. CALCIUM FOLINATE [Concomitant]
     Active Substance: LEUCOVORIN CALCIUM
     Indication: RECTAL ADENOCARCINOMA
     Dates: start: 20190604, end: 20191109

REACTIONS (3)
  - Pneumonitis [Unknown]
  - Palmar-plantar erythrodysaesthesia syndrome [Unknown]
  - Myelosuppression [Unknown]
